FAERS Safety Report 8059359-9 (Version None)
Quarter: 2012Q1

REPORT INFORMATION
  Report Type: 
  Country: None (occurrence: None)
  Receive Date: 20120120
  Receipt Date: 20120120
  Transmission Date: 20120608
  Serious: Yes (Life-Threatening)
  Sender: FDA-Public Use
  Company Number: None

PATIENT
  Age: 71 Year
  Sex: Male
  Weight: 56.699 kg

DRUGS (2)
  1. PROZAC [Suspect]
     Indication: POST-TRAUMATIC STRESS DISORDER
     Dosage: 1/70MG
     Route: 048
     Dates: start: 19930101, end: 20120115
  2. CYMBALTA [Concomitant]
     Indication: DEPRESSION
     Dosage: 1/30MG
     Route: 048
     Dates: start: 19850101, end: 19900101

REACTIONS (4)
  - MARITAL PROBLEM [None]
  - DIVORCED [None]
  - MOOD ALTERED [None]
  - ABNORMAL BEHAVIOUR [None]
